FAERS Safety Report 20124591 (Version 2)
Quarter: 2021Q4

REPORT INFORMATION
  Report Type: Spontaneous
  Country: US (occurrence: US)
  Receive Date: 20211129
  Receipt Date: 20211206
  Transmission Date: 20220303
  Serious: No
  Sender: FDA-Public Use
  Company Number: US-TEVA-2021-US-1979518

PATIENT
  Sex: Female

DRUGS (1)
  1. ADIPEX-P [Suspect]
     Active Substance: PHENTERMINE HYDROCHLORIDE
     Indication: Weight increased
     Dosage: 37.5 MILLIGRAM DAILY;
     Route: 048

REACTIONS (2)
  - Drug effect less than expected [Unknown]
  - Product physical issue [Unknown]
